FAERS Safety Report 23268038 (Version 7)
Quarter: 2025Q1

REPORT INFORMATION
  Report Type: Report from Study
  Country: CA (occurrence: CA)
  Receive Date: 20231206
  Receipt Date: 20250305
  Transmission Date: 20250408
  Serious: Yes (Other)
  Sender: BIOCON
  Company Number: CA-MYLANLABS-2023M1062673

PATIENT

DRUGS (7)
  1. HULIO [Suspect]
     Active Substance: ADALIMUMAB-FKJP
     Indication: Crohn^s disease
     Route: 058
  2. HULIO [Suspect]
     Active Substance: ADALIMUMAB-FKJP
     Route: 058
  3. HULIO [Suspect]
     Active Substance: ADALIMUMAB-FKJP
     Route: 058
  4. HULIO [Suspect]
     Active Substance: ADALIMUMAB-FKJP
     Route: 058
     Dates: start: 20230727
  5. HULIO [Suspect]
     Active Substance: ADALIMUMAB-FKJP
     Route: 058
     Dates: start: 20230727
  6. HULIO [Suspect]
     Active Substance: ADALIMUMAB-FKJP
     Route: 058
     Dates: start: 20230727
  7. HULIO [Suspect]
     Active Substance: ADALIMUMAB-FKJP
     Dosage: 20 MILLIGRAM, Q2W
     Route: 058
     Dates: start: 20250220

REACTIONS (10)
  - Enterocolitis [Unknown]
  - Crohn^s disease [Unknown]
  - Anal fistula [Unknown]
  - Injection site induration [Unknown]
  - Anxiety [Unknown]
  - Hypersensitivity [Unknown]
  - Injection site haemorrhage [Unknown]
  - Product administered at inappropriate site [Unknown]
  - Circumstance or information capable of leading to medication error [Unknown]
  - Off label use [Unknown]
